FAERS Safety Report 24616203 (Version 2)
Quarter: 2024Q4

REPORT INFORMATION
  Report Type: Spontaneous
  Country: US (occurrence: US)
  Receive Date: 20241113
  Receipt Date: 20241116
  Transmission Date: 20250115
  Serious: No
  Sender: SANOFI AVENTIS
  Company Number: US-SA-2024SA329349

PATIENT
  Age: 14 Year
  Sex: Female
  Weight: 45.45 kg

DRUGS (3)
  1. DUPIXENT [Suspect]
     Active Substance: DUPILUMAB
     Dosage: UNK, QOW
     Route: 065
  2. SULFUR [Suspect]
     Active Substance: SULFUR
     Indication: Pruritus
     Dosage: UNK
     Route: 065
  3. SULFUR [Suspect]
     Active Substance: SULFUR
     Indication: Rash

REACTIONS (3)
  - Burning sensation [Unknown]
  - Pruritus [Recovering/Resolving]
  - Rash [Unknown]
